FAERS Safety Report 5251303-2 (Version None)
Quarter: 2007Q1

REPORT INFORMATION
  Report Type: 
  Country: None (occurrence: None)
  Receive Date: 20070228
  Receipt Date: 20070220
  Transmission Date: 20070707
  Serious: Yes (Life-Threatening, Hospitalization, Other)
  Sender: FDA-Public Use
  Company Number: CA-JNJFOC-20061003821

PATIENT
  Sex: Female
  Weight: 61 kg

DRUGS (28)
  1. REMICADE [Suspect]
     Route: 042
  2. REMICADE [Suspect]
     Route: 042
  3. REMICADE [Suspect]
     Route: 042
  4. REMICADE [Suspect]
     Route: 042
  5. REMICADE [Suspect]
     Route: 042
  6. REMICADE [Suspect]
     Route: 042
  7. REMICADE [Suspect]
     Route: 042
  8. REMICADE [Suspect]
     Route: 042
  9. REMICADE [Suspect]
     Route: 042
  10. REMICADE [Suspect]
     Route: 042
  11. REMICADE [Suspect]
     Route: 042
  12. REMICADE [Suspect]
     Route: 042
  13. REMICADE [Suspect]
     Route: 042
  14. REMICADE [Suspect]
     Route: 042
  15. REMICADE [Suspect]
     Route: 042
  16. REMICADE [Suspect]
     Route: 042
  17. REMICADE [Suspect]
     Route: 042
  18. REMICADE [Suspect]
     Indication: DERMATOMYOSITIS
     Route: 042
  19. FRAGMIN [Concomitant]
     Route: 058
  20. FRAGMIN [Concomitant]
     Route: 058
  21. FOSAMAX [Concomitant]
  22. ATIVAN [Concomitant]
  23. FOLIC ACID [Concomitant]
  24. VITAMIN D [Concomitant]
  25. LOSEC [Concomitant]
  26. B12 [Concomitant]
  27. BENADRYL [Concomitant]
  28. TYLENOL [Concomitant]

REACTIONS (3)
  - DEEP VEIN THROMBOSIS [None]
  - SURGERY [None]
  - TENDON INJURY [None]
